FAERS Safety Report 11484411 (Version 1)
Quarter: 2015Q3

REPORT INFORMATION
  Report Type: Spontaneous
  Country: US (occurrence: US)
  Receive Date: 20150903
  Receipt Date: 20150903
  Transmission Date: 20151125
  Serious: No
  Sender: FDA-Public Use
  Company Number: US-ELI_LILLY_AND_COMPANY-US201208000229

PATIENT
  Sex: Female

DRUGS (4)
  1. CYMBALTA [Suspect]
     Active Substance: DULOXETINE HYDROCHLORIDE
     Indication: ANXIETY
     Dosage: 30 MG, QD
  2. CYMBALTA [Suspect]
     Active Substance: DULOXETINE HYDROCHLORIDE
     Dosage: 60 MG, QD
  3. CYMBALTA [Suspect]
     Active Substance: DULOXETINE HYDROCHLORIDE
     Dosage: 30 MG, QD
  4. GABAPENTIN. [Concomitant]
     Active Substance: GABAPENTIN
     Dosage: UNK, UNKNOWN
     Route: 065

REACTIONS (11)
  - Abnormal dreams [Unknown]
  - Anger [Unknown]
  - Pruritus [Unknown]
  - Insomnia [Unknown]
  - Mood altered [Unknown]
  - Hot flush [Unknown]
  - Dizziness [Unknown]
  - Intentional product misuse [Unknown]
  - Gait disturbance [Unknown]
  - Nausea [Unknown]
  - Drug withdrawal syndrome [Unknown]
